FAERS Safety Report 15598297 (Version 1)
Quarter: 2018Q4

REPORT INFORMATION
  Report Type: Spontaneous
  Country: US (occurrence: US)
  Receive Date: 20181108
  Receipt Date: 20181108
  Transmission Date: 20190205
  Serious: Yes (Other)
  Sender: FDA-Public Use
  Company Number: None

PATIENT
  Age: 63 Year
  Sex: Male
  Weight: 65.25 kg

DRUGS (3)
  1. PREDNISONE 10 MG TABLET [Suspect]
     Active Substance: PREDNISONE
     Indication: PAIN
     Dosage: ?          QUANTITY:4 TABLET(S);?
     Route: 048
     Dates: start: 20181101, end: 20181102
  2. VITAMIN D [Concomitant]
     Active Substance: CHOLECALCIFEROL
  3. GINGER. [Concomitant]
     Active Substance: GINGER

REACTIONS (10)
  - Vision blurred [None]
  - Depression [None]
  - Decreased appetite [None]
  - Emotional disorder [None]
  - Food refusal [None]
  - Insomnia [None]
  - Haematochezia [None]
  - Condition aggravated [None]
  - Anxiety [None]
  - Anger [None]

NARRATIVE: CASE EVENT DATE: 20181102
